FAERS Safety Report 10040298 (Version 1)
Quarter: 2014Q1

REPORT INFORMATION
  Report Type: Spontaneous
  Country: US (occurrence: US)
  Receive Date: 20140327
  Receipt Date: 20140327
  Transmission Date: 20141002
  Serious: No
  Sender: FDA-Public Use
  Company Number: US-009507513-1403USA009922

PATIENT
  Age: 55 Year
  Sex: Female

DRUGS (11)
  1. PEGINTRON [Suspect]
     Indication: HEPATITIS C
     Dosage: 0.5 ML, QW, REDIPEN ,STRENGTH 150MCG/.5M1
     Route: 058
     Dates: start: 20140307
  2. REBETOL [Suspect]
     Indication: HEPATITIS C
     Dosage: 3 DF, BID
     Route: 048
     Dates: start: 20140307
  3. SOVALDI [Concomitant]
     Dosage: ONE DAILY
  4. DEXILANT [Concomitant]
     Dosage: ONE DAILY
  5. FENOFIBRATE [Concomitant]
     Dosage: ONE DAILY
  6. EFFEXOR XR [Concomitant]
     Dosage: 3CAPS A DAY
  7. BENZTROPINE MESYLATE [Concomitant]
     Dosage: ONE TWICE A DAY
  8. ABILIFY [Concomitant]
     Dosage: ONE A DAY
  9. MICARDIS [Concomitant]
     Dosage: ONE A DAY
  10. LEVOXYL [Concomitant]
     Dosage: ONE,EXCEPT WED./SAT.
  11. LEVOXYL [Concomitant]
     Dosage: ONE, WED. SAT

REACTIONS (1)
  - Somnolence [Unknown]
